FAERS Safety Report 5929696-X (Version None)
Quarter: 2008Q4

REPORT INFORMATION
  Report Type: 
  Country: None (occurrence: None)
  Receive Date: 20081024
  Receipt Date: 20081020
  Transmission Date: 20090506
  Serious: Yes (Death)
  Sender: FDA-Public Use
  Company Number: US-ELI_LILLY_AND_COMPANY-US200809000942

PATIENT
  Sex: Male

DRUGS (15)
  1. BYETTA [Suspect]
     Indication: TYPE 2 DIABETES MELLITUS
  2. LANOXIN [Concomitant]
  3. PRINIVIL [Concomitant]
  4. COUMADIN [Concomitant]
  5. ZOCOR [Concomitant]
  6. LOPID [Concomitant]
  7. GLYBURIDE [Concomitant]
  8. METFORMIN HYDROCHLORIDE [Concomitant]
  9. DITROPAN [Concomitant]
  10. RESTORIL [Concomitant]
  11. MULTI-VITAMIN [Concomitant]
  12. GLUCOSAMINE SULFATE W/CHONDROITIN [Concomitant]
  13. DOMPERIDONE [Concomitant]
  14. OMEPRAZOLE [Concomitant]
  15. SODIUM BICARBONATE [Concomitant]

REACTIONS (1)
  - PANCREATIC CARCINOMA METASTATIC [None]
